FAERS Safety Report 4917700-7 (Version None)
Quarter: 2006Q1

REPORT INFORMATION
  Report Type: 
  Country: None (occurrence: None)
  Receive Date: 20060221
  Receipt Date: 20051110
  Transmission Date: 20060701
  Serious: Yes (Hospitalization)
  Sender: FDA-Public Use
  Company Number: FR-ROCHE-424626

PATIENT
  Age: 46 Year
  Sex: Male
  Weight: 70 kg

DRUGS (4)
  1. CLONAZEPAM [Suspect]
     Indication: EPILEPSY
     Route: 048
  2. CARBAMAZEPINE [Suspect]
     Indication: EPILEPSY
     Dosage: DRUG NAME REPORTED AS CARBAMAZEPINE G GAM
     Route: 048
     Dates: start: 20051015, end: 20051018
  3. CARBAMAZEPINE [Suspect]
     Route: 048
  4. DOLIPRANE [Suspect]
     Indication: DRUG USE FOR UNKNOWN INDICATION
     Route: 048
     Dates: start: 20051001

REACTIONS (7)
  - DRUG INEFFECTIVE [None]
  - EPILEPSY [None]
  - FACIAL BONES FRACTURE [None]
  - FALL [None]
  - INJURY [None]
  - LOSS OF CONSCIOUSNESS [None]
  - MALAISE [None]
